FAERS Safety Report 6974702-7 (Version None)
Quarter: 2010Q3

REPORT INFORMATION
  Report Type: 
  Country: None (occurrence: None)
  Receive Date: 20100909
  Receipt Date: 20090121
  Transmission Date: 20110219
  Serious: No
  Sender: FDA-Public Use
  Company Number: US-WYE-H07047408

PATIENT
  Age: 51 Year
  Sex: Female
  Weight: 74.46 kg

DRUGS (3)
  1. PRISTIQ [Suspect]
     Indication: MENOPAUSE
     Route: 048
     Dates: start: 20081201
  2. POTASSIUM [Concomitant]
  3. DIOVAN [Concomitant]

REACTIONS (3)
  - INITIAL INSOMNIA [None]
  - PRURITUS [None]
  - RESTLESSNESS [None]
